FAERS Safety Report 9544249 (Version 1)
Quarter: 2013Q3

REPORT INFORMATION
  Report Type: Spontaneous
  Country: FR (occurrence: FR)
  Receive Date: 20130923
  Receipt Date: 20130923
  Transmission Date: 20140515
  Serious: Yes (Hospitalization, Disabling, Other)
  Sender: FDA-Public Use
  Company Number: FR-009507513-1304FRA001310

PATIENT
  Age: 39 Year
  Sex: Female

DRUGS (1)
  1. MERCILON [Suspect]
     Indication: CONTRACEPTION
     Dosage: UNK
     Dates: start: 1990, end: 201004

REACTIONS (2)
  - Retinal artery occlusion [Recovered/Resolved with Sequelae]
  - Visual field defect [Not Recovered/Not Resolved]
